FAERS Safety Report 5627049-5 (Version None)
Quarter: 2008Q1

REPORT INFORMATION
  Report Type: 
  Country: None (occurrence: None)
  Receive Date: 20080117
  Receipt Date: 20080117
  Transmission Date: 20080703
  Serious: Yes (Hospitalization)
  Sender: FDA-Public Use
  Company Number: E2020-01540-SPO-US

PATIENT
  Age: 78 Year
  Sex: Female

DRUGS (7)
  1. ARICEPT [Suspect]
     Indication: AMNESIA
     Dosage: 10 MG, 1 IN 1 D, ORAL
     Route: 048
     Dates: start: 20050101
  2. NAMENDA [Suspect]
     Indication: AMNESIA
     Dosage: 10, 1 IN 1 D, ORAL
     Route: 048
     Dates: start: 20071006
  3. PAXIL [Concomitant]
  4. BENAZEPRIL HCL [Concomitant]
  5. LOPRESSOR [Concomitant]
  6. LOVASTATIN [Concomitant]
  7. FAMOTIDINE [Concomitant]

REACTIONS (4)
  - DIARRHOEA [None]
  - HALLUCINATION [None]
  - SOMNOLENCE [None]
  - SYNCOPE [None]
